FAERS Safety Report 17364152 (Version 3)
Quarter: 2020Q1

REPORT INFORMATION
  Report Type: Spontaneous
  Country: RO (occurrence: RO)
  Receive Date: 20200204
  Receipt Date: 20200226
  Transmission Date: 20200409
  Serious: Yes (Other)
  Sender: FDA-Public Use
  Company Number: RO-ADVANZ PHARMA-202001000479

PATIENT

DRUGS (3)
  1. ALFUZOSIN [Suspect]
     Active Substance: ALFUZOSIN
     Indication: PROSTATITIS
     Dosage: 10 MG, QD
     Route: 048
     Dates: start: 202001, end: 2020
  2. MARATHON [Concomitant]
     Dosage: UNK
     Dates: start: 202002
  3. TAMSULOSIN HYDROCHLORIDE. [Suspect]
     Active Substance: TAMSULOSIN HYDROCHLORIDE
     Indication: PRODUCT USED FOR UNKNOWN INDICATION
     Dosage: UNK
     Route: 065
     Dates: start: 2019, end: 201912

REACTIONS (2)
  - Erectile dysfunction [Not Recovered/Not Resolved]
  - Neck pain [Recovered/Resolved]
